FAERS Safety Report 12602587 (Version 1)
Quarter: 2016Q3

REPORT INFORMATION
  Report Type: Spontaneous
  Country: US (occurrence: None)
  Receive Date: 20160727
  Receipt Date: 20160727
  Transmission Date: 20161109
  Serious: Yes (Hospitalization)
  Sender: FDA-Public Use
  Company Number: None

PATIENT
  Age: 56 Year
  Sex: Male
  Weight: 68.5 kg

DRUGS (13)
  1. ASPIRIN. [Concomitant]
     Active Substance: ASPIRIN
  2. CARVEDILOL. [Concomitant]
     Active Substance: CARVEDILOL
  3. CYANOCOBALAMIN. [Concomitant]
     Active Substance: CYANOCOBALAMIN
  4. CILOSTAZOL. [Concomitant]
     Active Substance: CILOSTAZOL
  5. CALCITRIOL. [Concomitant]
     Active Substance: CALCITRIOL
  6. CLOPIDOGREL [Concomitant]
     Active Substance: CLOPIDOGREL BISULFATE
  7. INFLIXIMAB [Concomitant]
     Active Substance: INFLIXIMAB
  8. ATORVASTATIN [Concomitant]
     Active Substance: ATORVASTATIN
  9. CHOLECALCIFEROL [Concomitant]
     Active Substance: CHOLECALCIFEROL
  10. ENALAPRIL [Suspect]
     Active Substance: ENALAPRIL
     Indication: HYPERTENSION
     Route: 048
     Dates: start: 20160606, end: 20160722
  11. AMLODIPINE [Concomitant]
     Active Substance: AMLODIPINE BESYLATE
  12. AZATHIOPRINE. [Concomitant]
     Active Substance: AZATHIOPRINE
  13. OMEGA-3 FATTY ACIDS-FISH OIL [Concomitant]

REACTIONS (2)
  - Acute kidney injury [None]
  - Hyperkalaemia [None]

NARRATIVE: CASE EVENT DATE: 20160722
